FAERS Safety Report 14952733 (Version 1)
Quarter: 2018Q2

REPORT INFORMATION
  Report Type: Spontaneous
  Country: IL (occurrence: IL)
  Receive Date: 20180530
  Receipt Date: 20180530
  Transmission Date: 20180711
  Serious: Yes (Other)
  Sender: FDA-Public Use
  Company Number: IL-OXFORD PHARMACEUTICALS, LLC-2018OXF00054

PATIENT

DRUGS (2)
  1. DIPYRIDAMOLE. [Suspect]
     Active Substance: DIPYRIDAMOLE
     Indication: CARDIAC STRESS TEST
     Dosage: 0.56 MG/KG, ONCE, INFUSION OVER 4 MINUTES
     Route: 065
  2. TECHNETIUM 99M SESTAMIBI [Concomitant]
     Route: 065

REACTIONS (1)
  - Atrioventricular block second degree [Recovered/Resolved]
